FAERS Safety Report 5727518-3 (Version None)
Quarter: 2008Q2

REPORT INFORMATION
  Report Type: 
  Country: None (occurrence: None)
  Receive Date: 20080429
  Receipt Date: 20070823
  Transmission Date: 20081010
  Serious: Yes (Hospitalization)
  Sender: FDA-Public Use
  Company Number: 2007-163330-NL

PATIENT
  Age: 28 Year
  Sex: Female

DRUGS (2)
  1. PUREGON [Suspect]
     Dosage: TOTAL DOSAGE 2 JULY 2007 - 9 JULY 2007: 1150 UI
     Dates: start: 20070702, end: 20070709
  2. GANIRELIX ACETATE INJECTION [Concomitant]

REACTIONS (1)
  - OVARIAN HYPERSTIMULATION SYNDROME [None]
